FAERS Safety Report 17236870 (Version 1)
Quarter: 2020Q1

REPORT INFORMATION
  Report Type: Spontaneous
  Country: PL (occurrence: PL)
  Receive Date: 20200106
  Receipt Date: 20200106
  Transmission Date: 20200409
  Serious: Yes (Hospitalization)
  Sender: FDA-Public Use
  Company Number: PL-MYLANLABS-2019M1133038

PATIENT
  Age: 25 Year
  Sex: Male

DRUGS (10)
  1. FLUCONAZOLE. [Concomitant]
     Active Substance: FLUCONAZOLE
     Indication: TINEA BARBAE
  2. TERBINAFINE. [Suspect]
     Active Substance: TERBINAFINE
     Indication: TRICHOPHYTOSIS
     Dosage: 250 MILLIGRAM, QD
     Route: 048
     Dates: start: 200910
  3. VANCOMYCIN [Suspect]
     Active Substance: VANCOMYCIN
     Indication: TINEA BARBAE
  4. AMOXICILLIN/CLAVULANIC ACID [Suspect]
     Active Substance: AMOXICILLIN\CLAVULANIC ACID
     Indication: TINEA BARBAE
  5. CEFTRIAXONE. [Suspect]
     Active Substance: CEFTRIAXONE
     Indication: TRICHOPHYTOSIS
     Dosage: 2 GRAM, QD
     Route: 042
     Dates: start: 200910
  6. CEFTRIAXONE. [Suspect]
     Active Substance: CEFTRIAXONE
     Indication: TINEA BARBAE
  7. TERBINAFINE. [Suspect]
     Active Substance: TERBINAFINE
     Indication: TINEA BARBAE
  8. AMOXICILLIN/CLAVULANIC ACID [Suspect]
     Active Substance: AMOXICILLIN\CLAVULANIC ACID
     Indication: TRICHOPHYTOSIS
     Dosage: STARTED FOR 8 DAYS
     Route: 065
     Dates: start: 200910
  9. VANCOMYCIN [Suspect]
     Active Substance: VANCOMYCIN
     Indication: TRICHOPHYTOSIS
     Dosage: STARTED 4 DAYS PRIOR TO ERYTHEMA NODOSUM
     Route: 065
     Dates: start: 200910
  10. FLUCONAZOLE. [Concomitant]
     Active Substance: FLUCONAZOLE
     Indication: TRICHOPHYTOSIS
     Dosage: UNK
     Route: 042
     Dates: start: 200910

REACTIONS (4)
  - Dermatitis [Recovering/Resolving]
  - Abdominal pain [Recovering/Resolving]
  - Erythema nodosum [Recovering/Resolving]
  - Arthritis [Recovering/Resolving]

NARRATIVE: CASE EVENT DATE: 200910
